FAERS Safety Report 10234081 (Version 2)
Quarter: 2014Q2

REPORT INFORMATION
  Report Type: Spontaneous
  Country: US (occurrence: US)
  Receive Date: 20140612
  Receipt Date: 20140625
  Transmission Date: 20141212
  Serious: Yes (Death)
  Sender: FDA-Public Use
  Company Number: US-B.I. PHARMACEUTICALS,INC./RIDGEFIELD-2014-BI-26436BP

PATIENT
  Age: 80 Year
  Sex: Female

DRUGS (10)
  1. PRADAXA [Suspect]
     Indication: ATRIAL FIBRILLATION
     Dosage: 150 MG
     Route: 048
     Dates: start: 201310
  2. JANUVIA [Concomitant]
     Route: 065
  3. HYDROCHLOROTHIAZIDE [Concomitant]
     Route: 065
  4. NORVASC [Concomitant]
     Route: 065
  5. ATENOLOL [Concomitant]
     Route: 065
  6. CRESTOR [Concomitant]
     Route: 065
  7. CALCIUM [Concomitant]
     Indication: SUPPLEMENTATION THERAPY
     Route: 065
  8. GLIPIZIDE [Concomitant]
     Route: 065
  9. ASPIRIN [Concomitant]
     Route: 065
  10. FISH OIL [Concomitant]
     Route: 065

REACTIONS (1)
  - Cerebrovascular accident [Fatal]
